FAERS Safety Report 7441611-9 (Version None)
Quarter: 2011Q2

REPORT INFORMATION
  Report Type: 
  Country: None (occurrence: None)
  Receive Date: 20110428
  Receipt Date: 20110426
  Transmission Date: 20111010
  Serious: No
  Sender: FDA-Public Use
  Company Number: US-PFIZER INC-2011085034

PATIENT
  Sex: Female
  Weight: 82.993 kg

DRUGS (13)
  1. NORVASC [Concomitant]
     Indication: HYPERTENSION
     Dosage: UNK
  2. MONTELUKAST [Concomitant]
     Dosage: UNK
  3. ACETYLSALICYLIC ACID [Concomitant]
     Dosage: 81 MG, UNK
  4. LEXAPRO [Concomitant]
     Indication: DEPRESSION
     Dosage: UNK
  5. MAXZIDE [Concomitant]
     Dosage: UNK
  6. SPIRIVA [Concomitant]
     Dosage: UNK
     Route: 055
  7. NICOTROL [Suspect]
     Indication: SMOKING CESSATION THERAPY
     Dosage: 10MG INHALER WHICH DELIVERS 4MG AT AN UNKNOWN FREQUENCY
     Dates: start: 20110412
  8. RISPERDAL [Concomitant]
     Dosage: UNK
  9. SYMBICORT [Concomitant]
     Dosage: UNK
     Route: 055
  10. PROVENTIL GENTLEHALER [Concomitant]
     Dosage: UNK
     Route: 055
  11. KLOR-CON [Concomitant]
     Dosage: UNK
  12. FEXOFENADINE [Concomitant]
     Dosage: UNK
  13. LANSOPRAZOLE [Concomitant]
     Indication: GASTROOESOPHAGEAL REFLUX DISEASE
     Dosage: UNK

REACTIONS (1)
  - CHEST DISCOMFORT [None]
